FAERS Safety Report 23088926 (Version 1)
Quarter: 2023Q4

REPORT INFORMATION
  Report Type: Report from Study
  Country: US (occurrence: US)
  Receive Date: 20231020
  Receipt Date: 20231020
  Transmission Date: 20240110
  Serious: Yes (Hospitalization, Other)
  Sender: FDA-Public Use
  Company Number: US-ACADIA PHARMACEUTICALS INC.-ACA-2023-PIM-004716

PATIENT
  Age: 87 Year
  Sex: Male

DRUGS (16)
  1. NUPLAZID [Suspect]
     Active Substance: PIMAVANSERIN TARTRATE
     Indication: Psychotic disorder due to a general medical condition
     Dosage: 34 MILLIGRAM, QD
     Route: 048
     Dates: start: 20230907
  2. NUPLAZID [Suspect]
     Active Substance: PIMAVANSERIN TARTRATE
     Indication: Delusion
  3. ALPRAZOLAM [Concomitant]
     Active Substance: ALPRAZOLAM
  4. ASPIRIN [Concomitant]
     Active Substance: ASPIRIN
  5. ATORVASTATIN [Concomitant]
     Active Substance: ATORVASTATIN
  6. CARBIDOPA\LEVODOPA [Concomitant]
     Active Substance: CARBIDOPA\LEVODOPA
  7. DISOPYRAMIDE [Concomitant]
     Active Substance: DISOPYRAMIDE
  8. ELIQUIS [Concomitant]
     Active Substance: APIXABAN
  9. LISINOPRIL [Concomitant]
     Active Substance: LISINOPRIL
  10. METOPROLOL SUCCINATE [Concomitant]
     Active Substance: METOPROLOL SUCCINATE
  11. MUPIROCIN [Concomitant]
     Active Substance: MUPIROCIN
     Dosage: UNK
  12. NAPROXEN [Concomitant]
     Active Substance: NAPROXEN
  13. OMEPRAZOLE [Concomitant]
     Active Substance: OMEPRAZOLE
  14. QUETIAPINE [Concomitant]
     Active Substance: QUETIAPINE
  15. SERTRALINE [Concomitant]
     Active Substance: SERTRALINE HYDROCHLORIDE
  16. VITAMINS NOS [Concomitant]
     Active Substance: VITAMINS

REACTIONS (2)
  - Cardiac failure [Recovered/Resolved]
  - Hypervolaemia [Recovered/Resolved]

NARRATIVE: CASE EVENT DATE: 20231002
